FAERS Safety Report 10593017 (Version 2)
Quarter: 2015Q1

REPORT INFORMATION
  Report Type: Spontaneous
  Country: JP (occurrence: JP)
  Receive Date: 20141119
  Receipt Date: 20150202
  Transmission Date: 20150720
  Serious: Yes (Hospitalization, Other)
  Sender: FDA-Public Use
  Company Number: JP-JNJFOC-20141111310

PATIENT
  Age: 31 Year
  Sex: Male

DRUGS (13)
  1. DAI-KENCHU-TO [Concomitant]
     Active Substance: MALTOSE
     Route: 048
     Dates: start: 20140710
  2. REMICADE [Suspect]
     Active Substance: INFLIXIMAB
     Indication: CROHN^S DISEASE
     Dosage: DURATION: 1 DAY
     Route: 042
     Dates: start: 20140903, end: 20140903
  3. SOLU-CORTEF [Suspect]
     Active Substance: HYDROCORTISONE SODIUM SUCCINATE
     Indication: PREMEDICATION
     Dosage: THERAPY DURATION: 1 DAY
     Route: 042
     Dates: start: 20141029, end: 20141029
  4. REMICADE [Suspect]
     Active Substance: INFLIXIMAB
     Indication: CROHN^S DISEASE
     Dosage: DURATION: 3 DAYS
     Route: 042
     Dates: start: 20140319, end: 20140709
  5. REMICADE [Suspect]
     Active Substance: INFLIXIMAB
     Indication: CROHN^S DISEASE
     Route: 042
     Dates: start: 201206
  6. DEXCHLORPHENIRAMINE MALEATE. [Suspect]
     Active Substance: DEXCHLORPHENIRAMINE MALEATE
     Indication: PREMEDICATION
     Dosage: THERAPY DURATION: 1 DAY
     Route: 042
     Dates: start: 20141029, end: 20141029
  7. CIPROFLOXACIN. [Concomitant]
     Active Substance: CIPROFLOXACIN
     Route: 048
     Dates: start: 20141020, end: 20141107
  8. REMICADE [Suspect]
     Active Substance: INFLIXIMAB
     Indication: CROHN^S DISEASE
     Dosage: DOSE: 300 MG, DURATION: 1 DAY
     Route: 042
     Dates: start: 20141029, end: 20141029
  9. DEXCHLORPHENIRAMINE MALEATE. [Suspect]
     Active Substance: DEXCHLORPHENIRAMINE MALEATE
     Indication: PREMEDICATION
     Dosage: THERAPY DURATION: 1 DAY
     Route: 042
     Dates: start: 20141224, end: 20141224
  10. PENTASA [Concomitant]
     Active Substance: MESALAMINE
     Route: 048
  11. ELENTAL [Concomitant]
     Route: 048
  12. FLAGYL [Concomitant]
     Active Substance: METRONIDAZOLE\METRONIDAZOLE HYDROCHLORIDE
     Route: 048
     Dates: start: 20141020, end: 20141107
  13. IMURAN [Concomitant]
     Active Substance: AZATHIOPRINE
     Route: 048

REACTIONS (5)
  - Abdominal abscess [Unknown]
  - Vesical fistula [Unknown]
  - Bladder prolapse [Unknown]
  - Hypokalaemia [Recovered/Resolved]
  - Fibrosis [Unknown]

NARRATIVE: CASE EVENT DATE: 20141010
